FAERS Safety Report 20414822 (Version 2)
Quarter: 2024Q1

REPORT INFORMATION
  Report Type: Spontaneous
  Country: US (occurrence: US)
  Receive Date: 20220202
  Receipt Date: 20240222
  Transmission Date: 20240410
  Serious: No
  Sender: FDA-Public Use
  Company Number: US-AMGEN-USASP2022016977

PATIENT
  Sex: Female

DRUGS (17)
  1. OTEZLA [Suspect]
     Active Substance: APREMILAST
     Indication: Psoriasis
     Dosage: 30 MILLIGRAM, BID
     Route: 048
     Dates: start: 20210618
  2. HYDROCORTISONE ACETATE [Concomitant]
     Active Substance: HYDROCORTISONE ACETATE
     Dosage: 2.5 PERCENT
  3. AMOXICILLIN\CLAVULANATE POTASSIUM [Concomitant]
     Active Substance: AMOXICILLIN\CLAVULANATE POTASSIUM
     Dosage: UNK, 500-125
  4. AMOXICILLIN [Concomitant]
     Active Substance: AMOXICILLIN
     Dosage: 500 MILLIGRAM
  5. CELECOXIB [Concomitant]
     Active Substance: CELECOXIB
     Dosage: 200 MILLIGRAM
  6. CLINDAMYCIN [Concomitant]
     Active Substance: CLINDAMYCIN
     Dosage: 150 MILLIGRAM
  7. DEXAMETHASONE [Concomitant]
     Active Substance: DEXAMETHASONE
     Dosage: 2 MILLIGRAM
  8. DOXYCYCLINE HYCLATE [Concomitant]
     Active Substance: DOXYCYCLINE HYCLATE
     Dosage: 100 MILLIGRAM
  9. FLUTICASONE [Concomitant]
     Active Substance: FLUTICASONE
     Dosage: 50 MICROGRAM
  10. LORATADINE [Concomitant]
     Active Substance: LORATADINE
     Dosage: 10 MILLIGRAM
  11. METFORMIN [Concomitant]
     Active Substance: METFORMIN HYDROCHLORIDE
     Dosage: 850 MILLIGRAM
  12. METHYLPREDNISOLONE [Concomitant]
     Active Substance: METHYLPREDNISOLONE
     Dosage: 4 MILLIGRAM
  13. OMEPRAZOLE [Concomitant]
     Active Substance: OMEPRAZOLE
     Dosage: 40 MILLIGRAM
  14. PRAVASTATIN [Concomitant]
     Active Substance: PRAVASTATIN
     Dosage: 20 MILLIGRAM
  15. ROSUVASTATIN [Concomitant]
     Active Substance: ROSUVASTATIN
     Dosage: 5 MILLIGRAM
  16. VITAMIN B12 [Concomitant]
     Active Substance: CYANOCOBALAMIN
     Dosage: 100 MICROGRAM
  17. VITAMIN B6 [Concomitant]
     Active Substance: PYRIDOXINE HYDROCHLORIDE
     Dosage: 50 MILLIGRAM

REACTIONS (2)
  - Psoriasis [Not Recovered/Not Resolved]
  - Product dose omission issue [Not Recovered/Not Resolved]
